FAERS Safety Report 25013057 (Version 1)
Quarter: 2025Q1

REPORT INFORMATION
  Report Type: Spontaneous
  Country: FR (occurrence: FR)
  Receive Date: 20250226
  Receipt Date: 20250226
  Transmission Date: 20250409
  Serious: Yes (Other)
  Sender: HIKMA
  Company Number: FR-HIKMA PHARMACEUTICALS USA INC.-FR-H14001-25-01620

PATIENT
  Age: 51 Year
  Sex: Male
  Weight: 90 kg

DRUGS (4)
  1. APREPITANT [Suspect]
     Active Substance: APREPITANT
     Indication: Vomiting
     Route: 048
     Dates: start: 20241216, end: 20241219
  2. CARBOPLATIN [Suspect]
     Active Substance: CARBOPLATIN
     Indication: Lung adenocarcinoma
     Route: 042
     Dates: start: 20241216, end: 20241216
  3. PEMETREXED [Suspect]
     Active Substance: PEMETREXED
     Indication: Lung adenocarcinoma
     Route: 042
     Dates: start: 20241216, end: 20241216
  4. FILGRASTIM [Suspect]
     Active Substance: FILGRASTIM
     Indication: Prophylaxis
     Route: 058
     Dates: start: 20241217, end: 20241222

REACTIONS (1)
  - Hepatocellular injury [Recovering/Resolving]

NARRATIVE: CASE EVENT DATE: 20241227
